FAERS Safety Report 5657580-8 (Version None)
Quarter: 2008Q1

REPORT INFORMATION
  Report Type: 
  Country: None (occurrence: None)
  Receive Date: 20080310
  Receipt Date: 20080229
  Transmission Date: 20080703
  Serious: Yes (Other)
  Sender: FDA-Public Use
  Company Number: PHBS2008BR00593

PATIENT
  Age: 64 Year
  Sex: Male
  Weight: 75 kg

DRUGS (19)
  1. CARBAMAZEPINE [Suspect]
     Indication: BIPOLAR DISORDER
     Dosage: 400 MG, 6QD
     Dates: start: 19890601, end: 20060401
  2. CARBAMAZEPINE [Suspect]
     Dosage: 1600 MG/DAY
     Dates: start: 19900716
  3. FLUPHENAZINE [Concomitant]
     Dosage: 5 MG, UNK
  4. CLONAZEPAM [Concomitant]
     Dosage: 2 MG, UNK
  5. TEGRETOL [Suspect]
     Indication: BIPOLAR DISORDER
     Dosage: 1200 MG/DAY
     Dates: end: 19901126
  6. TEGRETOL [Suspect]
     Dosage: 2200 MG /D
  7. TEGRETOL [Suspect]
     Dosage: 1600 TO 1800 MG /D
  8. TEGRETOL [Suspect]
     Dosage: 1600 MG/D
     Dates: start: 20080122
  9. TEGRETOL [Suspect]
     Dosage: 1600 MG/DAY
     Dates: start: 20080219
  10. CARBAMAZEPINE WITH HYDROXYPROPYLMETHYLCELLULOSE 30% (HAND-PREPARED) [Suspect]
     Indication: BIPOLAR DISORDER
     Dates: start: 19920601, end: 19921201
  11. FOLIC ACID [Concomitant]
     Dosage: 10 TO 15 MG /DAY
  12. FOLIC ACID [Concomitant]
     Dosage: INCREASED TO 10MG/DAY
  13. THYMOLEPTICS [Concomitant]
  14. DEPAKOTE [Concomitant]
     Dosage: VARYING FROM 500MG TO 1750 MG
     Dates: start: 20060407, end: 20060528
  15. MELLARIL [Concomitant]
     Dosage: 50 MG, UNK
  16. DIAZEPAM [Concomitant]
     Dosage: 10 MG, UNK
  17. TRILEPTAL [Suspect]
     Indication: BIPOLAR I DISORDER
     Dosage: 600 MG, QID
  18. TRILEPTAL [Suspect]
     Dosage: 600 TO 2400 MG/DAY
     Route: 048
     Dates: start: 20060529, end: 20080121
  19. TRILEPTAL [Suspect]
     Dosage: 450 MG, QID
     Route: 048
     Dates: start: 20061113

REACTIONS (11)
  - AGRANULOCYTOSIS [None]
  - ANTISOCIAL BEHAVIOUR [None]
  - ANXIETY [None]
  - DELIRIUM [None]
  - DEPRESSED MOOD [None]
  - DEPRESSION [None]
  - FEELING ABNORMAL [None]
  - IRRITABILITY [None]
  - LEUKOPENIA [None]
  - MALAISE [None]
  - PARKINSONIAN REST TREMOR [None]
